FAERS Safety Report 8560466-2 (Version None)
Quarter: 2012Q3

REPORT INFORMATION
  Report Type: 
  Country: None (occurrence: None)
  Receive Date: 20120802
  Receipt Date: 20120727
  Transmission Date: 20120928
  Serious: Yes (Hospitalization)
  Sender: FDA-Public Use
  Company Number: FR-009507513-1207FRA012402

PATIENT

DRUGS (6)
  1. PAROXETINE HCL [Concomitant]
     Dosage: 20 MG, QD
  2. PREDNISONE TAB [Concomitant]
     Indication: OSTEOARTHRITIS
     Dosage: 2.5 MG, QD
     Route: 048
  3. POTASSIUM CHLORIDE [Concomitant]
     Indication: HYPOKALAEMIA
     Dosage: 2 DF, QD
     Route: 048
  4. CYTARABINE [Suspect]
     Indication: MYELODYSPLASTIC SYNDROME
     Dosage: 19.7 MG, QD
     Route: 058
     Dates: start: 20110209, end: 20110222
  5. TENORETIC [Concomitant]
     Indication: HYPERTENSION
     Dosage: 1 DF, QD
     Route: 048
  6. MK-0683 [Suspect]
     Indication: MYELODYSPLASTIC SYNDROME
     Dosage: 400 MG, QD
     Route: 048
     Dates: start: 20110209, end: 20110222

REACTIONS (3)
  - HAEMATURIA [None]
  - FEBRILE BONE MARROW APLASIA [None]
  - THROMBOCYTOPENIA [None]
